FAERS Safety Report 5754851-1 (Version None)
Quarter: 2008Q2

REPORT INFORMATION
  Report Type: 
  Country: None (occurrence: None)
  Receive Date: 20080527
  Receipt Date: 20080507
  Transmission Date: 20081010
  Serious: Yes (Death)
  Sender: FDA-Public Use
  Company Number: 2008AL003801

PATIENT
  Age: 71 Year
  Sex: Female
  Weight: 50.8029 kg

DRUGS (2)
  1. DIGOXIN [Suspect]
     Indication: CARDIAC DISORDER
     Dosage: DAILY,PO
     Route: 048
  2. VERELAN [Concomitant]

REACTIONS (2)
  - APNOEA [None]
  - LUNG DISORDER [None]
